FAERS Safety Report 10016271 (Version 1)
Quarter: 2014Q1

REPORT INFORMATION
  Report Type: Spontaneous
  Country: US (occurrence: US)
  Receive Date: 20140317
  Receipt Date: 20140317
  Transmission Date: 20141002
  Serious: Yes (Other)
  Sender: FDA-Public Use
  Company Number: US-BRISTOL-MYERS SQUIBB COMPANY-20443651

PATIENT
  Age: 50 Year
  Sex: Female

DRUGS (9)
  1. ABATACEPT SUBQ INJECTION 125MG/ML [Suspect]
     Indication: PSORIATIC ARTHROPATHY
     Route: 058
     Dates: start: 20131014
  2. VITAMIN C [Concomitant]
  3. VITAMIN B6 [Concomitant]
  4. METOPROLOL SUCCINATE [Concomitant]
  5. LEVOTHYROXINE SODIUM [Concomitant]
  6. IBUPROFEN [Concomitant]
  7. PREDNISONE [Concomitant]
  8. CYCLOBENZAPRINE HCL [Concomitant]
  9. LEFLUNOMIDE [Concomitant]

REACTIONS (1)
  - Deafness [Unknown]
